FAERS Safety Report 24992251 (Version 1)
Quarter: 2025Q1

REPORT INFORMATION
  Report Type: Report from Study
  Country: US (occurrence: US)
  Receive Date: 20250220
  Receipt Date: 20250220
  Transmission Date: 20250409
  Serious: Yes (Other)
  Sender: RADIUS PHARM
  Company Number: US-RADIUS HEALTH INC.-2025US000220

PATIENT
  Sex: Female

DRUGS (1)
  1. TYMLOS [Suspect]
     Active Substance: ABALOPARATIDE
     Indication: Senile osteoporosis
     Dates: start: 20250113

REACTIONS (8)
  - Chest discomfort [Unknown]
  - Blood pressure increased [Unknown]
  - Heart rate increased [Unknown]
  - Urine output increased [Recovered/Resolved]
  - Pollakiuria [Recovered/Resolved]
  - Sympathomimetic effect [Unknown]
  - Sensory disturbance [Unknown]
  - Dizziness [Unknown]
